FAERS Safety Report 7891643-1 (Version None)
Quarter: 2011Q4

REPORT INFORMATION
  Report Type: 
  Country: None (occurrence: None)
  Receive Date: 20111103
  Receipt Date: 20110808
  Transmission Date: 20120403
  Serious: No
  Sender: FDA-Public Use
  Company Number: US-AMGEN-USASP2011040274

PATIENT
  Age: 59 Year
  Sex: Female

DRUGS (2)
  1. ENBREL [Suspect]
     Indication: RHEUMATOID ARTHRITIS
     Dosage: 50 MG, QWK
     Dates: start: 20110712
  2. PLAQUENIL [Concomitant]
     Dosage: 2 MG, QD
     Dates: start: 20010101

REACTIONS (5)
  - PAIN IN EXTREMITY [None]
  - JOINT SWELLING [None]
  - INJECTION SITE PAIN [None]
  - SWELLING [None]
  - INJECTION SITE URTICARIA [None]
